FAERS Safety Report 24129766 (Version 1)
Quarter: 2024Q3

REPORT INFORMATION
  Report Type: Spontaneous
  Country: EG (occurrence: EG)
  Receive Date: 20240724
  Receipt Date: 20240724
  Transmission Date: 20241017
  Serious: Yes (Hospitalization, Disabling, Other)
  Sender: NOVO NORDISK
  Company Number: EG-NOVOPROD-1256330

PATIENT
  Age: 909 Month
  Sex: Male
  Weight: 80 kg

DRUGS (1)
  1. INSULIN HUMAN [Suspect]
     Active Substance: INSULIN HUMAN
     Indication: Diabetes mellitus
     Dosage: 50U AND 20U
     Route: 058

REACTIONS (5)
  - Cerebral haemorrhage [Recovered/Resolved with Sequelae]
  - Fall [Recovered/Resolved with Sequelae]
  - Physical disability [Unknown]
  - Hypersomnia [Unknown]
  - Dizziness [Unknown]

NARRATIVE: CASE EVENT DATE: 20230708
